FAERS Safety Report 9323513 (Version 4)
Quarter: 2014Q1

REPORT INFORMATION
  Report Type: Spontaneous
  Country: US (occurrence: US)
  Receive Date: 20130603
  Receipt Date: 20140212
  Transmission Date: 20141002
  Serious: Yes (Other)
  Sender: FDA-Public Use
  Company Number: US-PFIZER INC-2013165949

PATIENT
  Age: 71 Year
  Sex: Female

DRUGS (2)
  1. XELJANZ [Suspect]
     Indication: RHEUMATOID ARTHRITIS
     Dosage: 5 MG, 2X/DAY
     Route: 048
     Dates: start: 20130404
  2. ORENCIA [Concomitant]
     Dosage: UNK

REACTIONS (7)
  - Urinary tract infection [Not Recovered/Not Resolved]
  - Meniscus injury [Unknown]
  - Fatigue [Unknown]
  - Local swelling [Unknown]
  - Musculoskeletal pain [Unknown]
  - Pain in extremity [Unknown]
  - Alopecia [Unknown]
